FAERS Safety Report 15988889 (Version 1)
Quarter: 2019Q1

REPORT INFORMATION
  Report Type: Spontaneous
  Country: FR (occurrence: FR)
  Receive Date: 20190221
  Receipt Date: 20190221
  Transmission Date: 20190418
  Serious: Yes (Hospitalization)
  Sender: FDA-Public Use
  Company Number: FR-ROCHE-2264755

PATIENT
  Age: 38 Year
  Sex: Male
  Weight: 79 kg

DRUGS (2)
  1. ISONIAZIDE [Suspect]
     Active Substance: ISONIAZID
     Indication: LATENT TUBERCULOSIS
     Route: 048
     Dates: start: 201809, end: 20190116
  2. OCREVUS [Suspect]
     Active Substance: OCRELIZUMAB
     Indication: MULTIPLE SCLEROSIS
     Dosage: MOST RECENT DOSE WAS RECEIVED ON 31/OCT/2018
     Route: 041
     Dates: start: 20181015

REACTIONS (1)
  - Hepatitis [Recovering/Resolving]

NARRATIVE: CASE EVENT DATE: 20190117
